FAERS Safety Report 5102403-9 (Version None)
Quarter: 2006Q3

REPORT INFORMATION
  Report Type: 
  Country: None (occurrence: None)
  Receive Date: 20060907
  Receipt Date: 20060817
  Transmission Date: 20061208
  Serious: Yes (Hospitalization)
  Sender: FDA-Public Use
  Company Number: US200608003799

PATIENT
  Sex: Male

DRUGS (5)
  1. HUMALOG MIX 75/25 [Suspect]
     Dates: start: 20050101, end: 20060816
  2. HUMALOG MIX 50/50 [Suspect]
     Dosage: 40 UNITS IN AM, 20 UNITS IN PM
     Dates: start: 20060815
  3. HUMALOG MIX 50/50 [Suspect]
     Dosage: 40 UNITS IN AM, 20 UNITS IN PM
     Dates: start: 20060816
  4. LANTUS [Concomitant]
  5. PROCRIT [Concomitant]

REACTIONS (10)
  - BLOOD GLUCOSE DECREASED [None]
  - BLOOD GLUCOSE FLUCTUATION [None]
  - BLOOD PRESSURE DECREASED [None]
  - CONFUSIONAL STATE [None]
  - HYPERHIDROSIS [None]
  - INCORRECT DOSE ADMINISTERED [None]
  - NEUROPATHY PERIPHERAL [None]
  - PHARMACEUTICAL PRODUCT COMPLAINT [None]
  - PNEUMONIA [None]
  - WRONG TECHNIQUE IN DRUG USAGE PROCESS [None]
